FAERS Safety Report 9739218 (Version 2)
Quarter: 2014Q1

REPORT INFORMATION
  Report Type: Spontaneous
  Country: US (occurrence: US)
  Receive Date: 20131209
  Receipt Date: 20140120
  Transmission Date: 20141002
  Serious: Yes (Other)
  Sender: FDA-Public Use
  Company Number: US-SHIRE-ALL1-2013-08254

PATIENT
  Age: 24 Year
  Sex: Male
  Weight: 90.7 kg

DRUGS (10)
  1. VYVANSE [Suspect]
     Indication: ATTENTION DEFICIT/HYPERACTIVITY DISORDER
     Dosage: 30 MG, 1X/DAY:QD
     Route: 048
     Dates: start: 20131020, end: 201311
  2. VYVANSE [Suspect]
     Dosage: 40 MG, 1X/DAY:QD
     Route: 048
     Dates: start: 2010
  3. VYVANSE [Suspect]
     Dosage: 60 MG, 1X/DAY:QD
     Route: 048
     Dates: start: 201210, end: 201211
  4. VYVANSE [Suspect]
     Dosage: UNK UNK, UNKNOWN
     Route: 048
     Dates: start: 201211, end: 201301
  5. VYVANSE [Suspect]
     Dosage: 20 MG, 2X/DAY:BID
     Route: 048
     Dates: start: 201311, end: 201311
  6. VYVANSE [Suspect]
     Dosage: 30 MG, 2X/DAY:BID
     Route: 048
     Dates: start: 201311, end: 201311
  7. VYVANSE [Suspect]
     Dosage: 30 MG, 1X/DAY:QD (MORNING)
     Route: 048
     Dates: start: 20131125
  8. VYVANSE [Suspect]
     Dosage: 40 MG, 1X/DAY:QD (AFTERNOON)
     Route: 048
     Dates: start: 20131125
  9. SYNTHROID [Concomitant]
     Indication: HYPOTHYROIDISM
     Dosage: 50 MG, 1X/DAY:QD
     Route: 048
     Dates: start: 201211
  10. TRAZODONE [Concomitant]
     Indication: SLEEP DISORDER
     Dosage: 100 MG, AS REQ^D
     Route: 048
     Dates: start: 2010

REACTIONS (9)
  - Depression [Not Recovered/Not Resolved]
  - Tachyphrenia [Not Recovered/Not Resolved]
  - Disturbance in attention [Not Recovered/Not Resolved]
  - Negativism [Not Recovered/Not Resolved]
  - Feeling of despair [Not Recovered/Not Resolved]
  - Nervousness [Not Recovered/Not Resolved]
  - Fatigue [Not Recovered/Not Resolved]
  - Drug ineffective [Not Recovered/Not Resolved]
  - Drug prescribing error [Not Recovered/Not Resolved]
